FAERS Safety Report 21647528 (Version 1)
Quarter: 2022Q4

REPORT INFORMATION
  Report Type: Spontaneous
  Country: DE (occurrence: DE)
  Receive Date: 20221128
  Receipt Date: 20221128
  Transmission Date: 20230112
  Serious: No
  Sender: FDA-Public Use
  Company Number: DE-ALKEM LABORATORIES LIMITED-DE-ALKEM-2022-09568

PATIENT
  Age: 27 Year
  Sex: Female

DRUGS (6)
  1. BRIVARACETAM [Interacting]
     Active Substance: BRIVARACETAM
     Indication: Partial seizures
     Dosage: 200 MILLIGRAM, DAILY DOSE
     Route: 065
  2. BRIVARACETAM [Interacting]
     Active Substance: BRIVARACETAM
     Dosage: 100 MILLIGRAM, DAILY (DOSE DECREASED)
     Route: 065
  3. LEVETIRACETAM [Suspect]
     Active Substance: LEVETIRACETAM
     Indication: Partial seizures
     Dosage: 2000 MILLIGRAM, DAILY DOSE
     Route: 065
  4. CARBAMAZEPINE [Interacting]
     Active Substance: CARBAMAZEPINE
     Indication: Partial seizures
     Dosage: 800 MILLIGRAM, QD
     Route: 065
  5. OXCARBAZEPINE [Concomitant]
     Active Substance: OXCARBAZEPINE
     Indication: Partial seizures
     Dosage: UNK ( EXTENDED-RELEASE OXC)
     Route: 065
  6. OXCARBAZEPINE [Concomitant]
     Active Substance: OXCARBAZEPINE
     Dosage: 1800 MILLIGRAM, (INCREASED THE DOSE STEPWISE TO A MAXIMUM)
     Route: 065

REACTIONS (7)
  - Diplopia [Recovered/Resolved]
  - Dizziness [Recovered/Resolved]
  - Irritability [Recovering/Resolving]
  - Nausea [Recovered/Resolved]
  - Nystagmus [Recovered/Resolved]
  - Vision blurred [Recovered/Resolved]
  - Drug interaction [Unknown]
